FAERS Safety Report 7356743-3 (Version None)
Quarter: 2011Q1

REPORT INFORMATION
  Report Type: 
  Country: None (occurrence: None)
  Receive Date: 20110316
  Receipt Date: 20110309
  Transmission Date: 20110831
  Serious: Yes (Disabling)
  Sender: FDA-Public Use
  Company Number: US-MERCK-1102USA00524

PATIENT
  Age: 54 Year
  Sex: Female

DRUGS (2)
  1. HORMONES (UNSPECIFIED) [Concomitant]
     Route: 065
  2. FOSAMAX PLUS D [Suspect]
     Indication: BONE DENSITY DECREASED
     Route: 048
     Dates: start: 20030201, end: 20090501

REACTIONS (5)
  - TOOTH DISORDER [None]
  - LABORATORY TEST ABNORMAL [None]
  - BONE DISORDER [None]
  - RESORPTION BONE INCREASED [None]
  - UPPER LIMB FRACTURE [None]
